FAERS Safety Report 8592588-4 (Version None)
Quarter: 2012Q3

REPORT INFORMATION
  Report Type: 
  Country: None (occurrence: None)
  Receive Date: 20120814
  Receipt Date: 20120808
  Transmission Date: 20120928
  Serious: Yes (Other)
  Sender: FDA-Public Use
  Company Number: US-PFIZER INC-2012194428

PATIENT
  Age: 38 Year
  Sex: Male

DRUGS (2)
  1. DIAZEPAM [Concomitant]
     Indication: CEREBRAL PALSY
     Dosage: 5 MG, AS NEEDED OR OR TWO TIMES A DAY
  2. LYRICA [Suspect]
     Indication: COMPLEX PARTIAL SEIZURES
     Dosage: 150 MG, 2X/DAY
     Route: 048
     Dates: start: 20060101

REACTIONS (1)
  - GLAUCOMA [None]
